FAERS Safety Report 7831520-5 (Version None)
Quarter: 2011Q4

REPORT INFORMATION
  Report Type: 
  Country: None (occurrence: None)
  Receive Date: 20111021
  Receipt Date: 20111017
  Transmission Date: 20120403
  Serious: Yes (Death, Hospitalization, Other)
  Sender: FDA-Public Use
  Company Number: US-ELI_LILLY_AND_COMPANY-US201108006610

PATIENT
  Sex: Male
  Weight: 46.712 kg

DRUGS (4)
  1. FOLIC ACID [Concomitant]
     Dosage: 1 MG, QD
     Route: 048
     Dates: start: 20100528
  2. VITAMIN B-12 [Concomitant]
     Dosage: 1000 MEQ, UNK
     Route: 030
     Dates: start: 20100528
  3. ALIMTA [Suspect]
     Indication: THYMOMA
     Dosage: 780 UNK, UNK
     Route: 042
     Dates: start: 20100604, end: 20100625
  4. ALIMTA [Suspect]
     Dosage: 555 UNK, UNK
     Dates: start: 20021220, end: 20101220

REACTIONS (7)
  - WEIGHT DECREASED [None]
  - DIARRHOEA [None]
  - HAEMOPTYSIS [None]
  - NEUTROPENIA [None]
  - DECREASED APPETITE [None]
  - OFF LABEL USE [None]
  - SEPSIS [None]
